FAERS Safety Report 4895264-4 (Version None)
Quarter: 2006Q1

REPORT INFORMATION
  Report Type: 
  Country: None (occurrence: None)
  Receive Date: 20060130
  Receipt Date: 20060118
  Transmission Date: 20060701
  Serious: Yes (Hospitalization)
  Sender: FDA-Public Use
  Company Number: PL-GLAXOSMITHKLINE-B0407151A

PATIENT
  Age: 56 Year
  Sex: Male

DRUGS (4)
  1. FONDAPARINUX SODIUM [Suspect]
     Dosage: 2.5MG PER DAY
     Route: 058
     Dates: start: 20041102
  2. ASPIRIN [Concomitant]
  3. CLOPIDOGREL [Concomitant]
  4. UNFRACTIONATED HEPARIN [Concomitant]

REACTIONS (1)
  - CORONARY ARTERY THROMBOSIS [None]
